FAERS Safety Report 4466257-6 (Version None)
Quarter: 2004Q4

REPORT INFORMATION
  Report Type: 
  Country: None (occurrence: None)
  Receive Date: 20041005
  Receipt Date: 20040929
  Transmission Date: 20050328
  Serious: Yes (Death, Hospitalization)
  Sender: FDA-Public Use
  Company Number: US-JNJFOC-20040910066

PATIENT
  Age: 78 Year
  Sex: Female

DRUGS (3)
  1. LEVAQUIN [Suspect]
     Indication: PNEUMONIA
     Route: 049
     Dates: start: 20031201
  2. LEVAQUIN [Suspect]
     Indication: BRONCHITIS
     Route: 049
     Dates: start: 20031201
  3. LEVAQUIN [Suspect]
     Route: 042

REACTIONS (5)
  - CARDIAC FAILURE [None]
  - GASTRITIS [None]
  - INSOMNIA [None]
  - NAUSEA [None]
  - RENAL FAILURE [None]
